FAERS Safety Report 5579608-6 (Version None)
Quarter: 2007Q4

REPORT INFORMATION
  Report Type: 
  Country: None (occurrence: None)
  Receive Date: 20071130
  Receipt Date: 20070715
  Transmission Date: 20080405
  Serious: No
  Sender: FDA-Public Use
  Company Number: US200707005213

PATIENT
  Age: 56 Year
  Sex: Female
  Weight: 88.4 kg

DRUGS (4)
  1. BYETTA [Suspect]
     Dosage: 5 UG, 2/D, SUBCUTANEOUS ; 10 UG, 2/D, SUBCUTANEOUS ; 5 UG, 2/D, SUBCUTANEOUS
     Route: 058
  2. GLUCOPHAGE [Concomitant]
  3. AMARYL [Concomitant]
  4. ACTOS [Concomitant]

REACTIONS (3)
  - BLOOD GLUCOSE INCREASED [None]
  - NAUSEA [None]
  - WEIGHT DECREASED [None]
